FAERS Safety Report 15877756 (Version 3)
Quarter: 2019Q1

REPORT INFORMATION
  Report Type: Report from Study
  Country: None (occurrence: US)
  Receive Date: 20190128
  Receipt Date: 20190301
  Transmission Date: 20190417
  Serious: Yes (Hospitalization, Other)
  Sender: FDA-Public Use
  Company Number: US-ABBVIE-19K-163-2639275-00

PATIENT
  Sex: Male

DRUGS (1)
  1. HUMIRA [Suspect]
     Active Substance: ADALIMUMAB
     Indication: COLITIS ULCERATIVE
     Route: 058

REACTIONS (6)
  - Gastrointestinal pain [Unknown]
  - Gastrointestinal infection [Unknown]
  - Colonic abscess [Unknown]
  - Rectal abscess [Unknown]
  - Intestinal haemorrhage [Unknown]
  - Anorectal infection [Unknown]
